FAERS Safety Report 5984711-2 (Version None)
Quarter: 2008Q4

REPORT INFORMATION
  Report Type: 
  Country: None (occurrence: None)
  Receive Date: 20081208
  Receipt Date: 20081201
  Transmission Date: 20090506
  Serious: Yes (Hospitalization, Other)
  Sender: FDA-Public Use
  Company Number: US-ROXANE LABORATORIES, INC.-2008-RO-00321RO

PATIENT
  Age: 54 Year
  Sex: Female

DRUGS (15)
  1. LITHIUM CARBONATE [Suspect]
     Indication: BIPOLAR DISORDER
     Dosage: 600RT
  2. LITHIUM CARBONATE [Suspect]
  3. AMLODIPINE [Suspect]
  4. CARBAMAZEPINE [Suspect]
  5. ATORVASTATIN CALCIUM [Suspect]
  6. CLONEZEPAM [Suspect]
  7. ATROPINE [Concomitant]
     Indication: BRADYCARDIA
     Route: 042
  8. EPINEPHRINE [Concomitant]
     Indication: HYPOTENSION
     Route: 042
  9. DOPAMINE HCL [Concomitant]
     Indication: HYPOTENSION
  10. NOREPINEPHRINE [Concomitant]
     Indication: HYPOTENSION
  11. LEVOTHYROXINE SODIUM [Concomitant]
     Indication: HYPOTHYROIDISM
     Dosage: 50MCG
     Route: 042
  12. AMILORIDE HYDROCHLORIDE [Concomitant]
     Dosage: 10MG
  13. HYDROCHLOROTHIAZIDE [Concomitant]
     Dosage: 50MG
  14. LIOTHYRONINE SODIUM [Concomitant]
     Indication: HYPOTHYROIDISM
     Dosage: 37.5MCG
  15. ORAL T4 [Concomitant]
     Indication: HYPOTHYROIDISM
     Dosage: 75MCG
     Route: 048

REACTIONS (7)
  - ATRIOVENTRICULAR BLOCK [None]
  - HYPOTENSION [None]
  - NEPHROGENIC DIABETES INSIPIDUS [None]
  - RENAL FAILURE ACUTE [None]
  - RESPIRATORY FAILURE [None]
  - SINUS BRADYCARDIA [None]
  - THERAPEUTIC AGENT TOXICITY [None]
